FAERS Safety Report 5071959-7 (Version None)
Quarter: 2006Q3

REPORT INFORMATION
  Report Type: 
  Country: None (occurrence: None)
  Receive Date: 20060801
  Receipt Date: 20060717
  Transmission Date: 20061208
  Serious: Yes (Hospitalization)
  Sender: FDA-Public Use
  Company Number: 2006S1006558

PATIENT
  Age: 80 Year
  Sex: Female

DRUGS (10)
  1. HYDROCHLOROTHIAZIDE [Suspect]
     Indication: HYPERTENSION
     Dosage: 25 MG;QD;PO
     Route: 048
     Dates: start: 20050501
  2. DOUBLEBLIND E2020/PLACEBO (DONEPEZIL HCL) [Suspect]
     Indication: COGNITIVE DISORDER
     Dosage: SEE IMAGE
     Route: 048
     Dates: start: 20051011, end: 20051130
  3. DOUBLEBLIND E2020/PLACEBO (DONEPEZIL HCL) [Suspect]
     Indication: COGNITIVE DISORDER
     Dosage: SEE IMAGE
     Route: 048
     Dates: start: 20051201
  4. GLYBURIDE [Suspect]
     Indication: DIABETES MELLITUS
     Dosage: 10 MG;QD;PO
     Route: 048
     Dates: start: 19850101
  5. METFORMIN [Suspect]
     Indication: DIABETES MELLITUS
     Dosage: 1000 MG;QD;PO
     Route: 048
     Dates: start: 19980101, end: 20060213
  6. GEMFIBROZIL [Concomitant]
  7. ACETYLSALICYLIC ACID SRT [Concomitant]
  8. VITAMIN E [Concomitant]
  9. MULTIVITAMIN [Concomitant]
  10. GARLIC [Concomitant]

REACTIONS (14)
  - ATRIAL FIBRILLATION [None]
  - BACK PAIN [None]
  - BACTERIA BLOOD IDENTIFIED [None]
  - CHILLS [None]
  - DEHYDRATION [None]
  - FEELING COLD [None]
  - HYPERTHYROIDISM [None]
  - HYPOGLYCAEMIA [None]
  - INSOMNIA [None]
  - LOBAR PNEUMONIA [None]
  - PSEUDOMONAS INFECTION [None]
  - SEPSIS [None]
  - TREMOR [None]
  - VOMITING [None]
